FAERS Safety Report 5564057-7 (Version None)
Quarter: 2007Q4

REPORT INFORMATION
  Report Type: 
  Country: None (occurrence: None)
  Receive Date: 20071217
  Receipt Date: 20071206
  Transmission Date: 20080405
  Serious: Yes (Other)
  Sender: FDA-Public Use
  Company Number: AT-BOEHRINGER INGELHEIM PHARMACEUTICALS, INC.-2007-BE-00107BE

PATIENT
  Sex: Male
  Weight: 75 kg

DRUGS (6)
  1. SPIRIVA [Suspect]
     Indication: CHRONIC OBSTRUCTIVE PULMONARY DISEASE
     Dates: start: 20050101, end: 20070101
  2. TEBOFORTAN [Concomitant]
  3. LOSEC [Concomitant]
  4. ALNA RETARD [Concomitant]
  5. SERETIDE FORTE [Concomitant]
  6. MAXI CALC [Concomitant]

REACTIONS (1)
  - MICTURITION DISORDER [None]
